FAERS Safety Report 9798006 (Version 2)
Quarter: 2014Q1

REPORT INFORMATION
  Report Type: Spontaneous
  Country: JP (occurrence: JP)
  Receive Date: 20140106
  Receipt Date: 20140106
  Transmission Date: 20141002
  Serious: Yes (Life-Threatening, Hospitalization)
  Sender: FDA-Public Use
  Company Number: JP-EISAI INC-E3810-06780-SPO-JP

PATIENT
  Age: 68 Year
  Sex: Male
  Weight: 62 kg

DRUGS (12)
  1. PARIET (RABEPRAZOLE) [Suspect]
     Indication: PRODUCT USED FOR UNKNOWN INDICATION
     Route: 048
     Dates: end: 20131027
  2. ATORVASTATIN [Suspect]
     Indication: PRODUCT USED FOR UNKNOWN INDICATION
     Route: 048
     Dates: end: 20131027
  3. BAYASPIRIN [Concomitant]
     Route: 048
  4. VALTREX [Concomitant]
     Route: 048
     Dates: start: 20131023, end: 20131027
  5. LOKIFLAN [Concomitant]
     Route: 048
     Dates: start: 20131022, end: 20131027
  6. FLOMOX [Concomitant]
     Route: 048
     Dates: start: 20131022, end: 20131027
  7. METGLUCO [Concomitant]
     Route: 048
     Dates: end: 20131027
  8. AMLODIPINE [Concomitant]
     Route: 048
     Dates: end: 20131027
  9. PLAVIX [Concomitant]
     Route: 048
     Dates: end: 20131027
  10. MICARDIS [Concomitant]
     Route: 048
     Dates: end: 20131027
  11. CALONAL [Concomitant]
  12. PL [Concomitant]
     Route: 048
     Dates: start: 20131022, end: 20131027

REACTIONS (6)
  - Malnutrition [Recovering/Resolving]
  - Liver disorder [Recovering/Resolving]
  - Hyponatraemia [Recovering/Resolving]
  - Rash [Unknown]
  - Pyrexia [Unknown]
  - Lymphadenopathy [Recovering/Resolving]
